FAERS Safety Report 15938826 (Version 1)
Quarter: 2019Q1

REPORT INFORMATION
  Report Type: Spontaneous
  Country: US (occurrence: US)
  Receive Date: 20190208
  Receipt Date: 20190208
  Transmission Date: 20190417
  Serious: No
  Sender: FDA-Public Use
  Company Number: US-ROCHE-2229620

PATIENT
  Age: 38 Year
  Sex: Female
  Weight: 70.37 kg

DRUGS (1)
  1. XOLAIR [Suspect]
     Active Substance: OMALIZUMAB
     Indication: URTICARIA
     Dosage: VIAL, TREATMENT DISCONTINUED
     Route: 058
     Dates: start: 20181015, end: 20181020

REACTIONS (3)
  - Nasal ulcer [Recovering/Resolving]
  - Weight increased [Recovering/Resolving]
  - Headache [Recovering/Resolving]

NARRATIVE: CASE EVENT DATE: 20181015
